FAERS Safety Report 6325949-4 (Version None)
Quarter: 2009Q3

REPORT INFORMATION
  Report Type: 
  Country: None (occurrence: None)
  Receive Date: 20090820
  Receipt Date: 20090811
  Transmission Date: 20100115
  Serious: Yes (Hospitalization)
  Sender: FDA-Public Use
  Company Number: GXKR2009JP09093

PATIENT
  Age: 78 Year
  Sex: Male

DRUGS (6)
  1. AZITHROMYCIN [Suspect]
     Indication: PYREXIA
     Dates: start: 20061001
  2. AZITHROMYCIN [Suspect]
     Indication: UPPER RESPIRATORY TRACT INFECTION
     Dates: start: 20061001
  3. AZITHROMYCIN [Suspect]
     Indication: PYREXIA
     Dates: start: 20061123
  4. AZITHROMYCIN [Suspect]
     Indication: UPPER RESPIRATORY TRACT INFECTION
     Dates: start: 20061123
  5. ANTIBIOTICS (NO INGREDIENTS/SUBSTANCES) [Concomitant]
  6. STEROIDS NOS (NO INGREDIENTS/SUBSTANCES) [Concomitant]

REACTIONS (8)
  - BLOOD LACTATE DEHYDROGENASE INCREASED [None]
  - BLOOD URINE PRESENT [None]
  - DYSPNOEA [None]
  - EOSINOPHIL COUNT INCREASED [None]
  - HAEMOPTYSIS [None]
  - PULMONARY ALVEOLAR HAEMORRHAGE [None]
  - RESPIRATORY DISORDER [None]
  - URINARY CASTS [None]
